FAERS Safety Report 9620056 (Version 2)
Quarter: 2013Q4

REPORT INFORMATION
  Report Type: Spontaneous
  Country: DE (occurrence: DE)
  Receive Date: 20131014
  Receipt Date: 20131212
  Transmission Date: 20140711
  Serious: Yes (Hospitalization, Other)
  Sender: FDA-Public Use
  Company Number: DE-UCBSA-100222

PATIENT
  Sex: Male

DRUGS (1)
  1. KEPPRA [Suspect]

REACTIONS (5)
  - Depression [Unknown]
  - Amnesia [Unknown]
  - Hallucination [Unknown]
  - Disturbance in attention [Unknown]
  - Abnormal behaviour [Unknown]
